FAERS Safety Report 10030151 (Version 2)
Quarter: 2014Q1

REPORT INFORMATION
  Report Type: Spontaneous
  Country: US (occurrence: US)
  Receive Date: 20140323
  Receipt Date: 20140323
  Transmission Date: 20141002
  Serious: No
  Sender: FDA-Public Use
  Company Number: US-ALLERGAN-1310328US

PATIENT
  Age: 33 Year
  Sex: Female

DRUGS (1)
  1. LATISSE 0.03% [Suspect]
     Indication: HYPOTRICHOSIS
     Dosage: 1 GTT, UNK
     Route: 061
     Dates: start: 20130427, end: 20130709

REACTIONS (5)
  - Hypersensitivity [Recovered/Resolved]
  - Eyelid ptosis [Recovered/Resolved]
  - Inappropriate schedule of drug administration [Unknown]
  - Incorrect dose administered [Unknown]
  - Eyelid oedema [Recovered/Resolved]
